FAERS Safety Report 7931916-7 (Version None)
Quarter: 2011Q4

REPORT INFORMATION
  Report Type: 
  Country: None (occurrence: None)
  Receive Date: 20111121
  Receipt Date: 20111110
  Transmission Date: 20120403
  Serious: Yes (Hospitalization)
  Sender: FDA-Public Use
  Company Number: US-BAYER-2011-059763

PATIENT
  Age: 18 Year
  Sex: Female
  Weight: 47 kg

DRUGS (9)
  1. CIPROFLOXACIN [Concomitant]
     Dosage: DAILY DOSE 500 MG
     Route: 048
     Dates: start: 20090208
  2. RETIN-A [Concomitant]
     Dosage: UNK
     Dates: start: 20090507
  3. YASMIN [Suspect]
     Indication: ACNE
  4. YASMIN [Suspect]
     Indication: PREMENSTRUAL SYNDROME
  5. IBUPROFEN [Concomitant]
     Dosage: UNK UNK, PRN
     Route: 048
     Dates: start: 20020101
  6. IBUPROFEN (ADVIL) [Concomitant]
     Dosage: UNK UNK, PRN
     Route: 048
     Dates: start: 20020101
  7. VICODIN [Concomitant]
     Dosage: UNK
     Route: 048
     Dates: start: 20090208
  8. CALCIUM [Concomitant]
     Dosage: DAILY DOSE 1200 MG
     Route: 048
     Dates: start: 20081126
  9. YASMIN [Suspect]
     Indication: CONTRACEPTION
     Dosage: UNK
     Route: 048
     Dates: start: 20081201, end: 20090501

REACTIONS (2)
  - DEEP VEIN THROMBOSIS [None]
  - PAIN [None]
